FAERS Safety Report 14172579 (Version 2)
Quarter: 2023Q1

REPORT INFORMATION
  Report Type: Other
  Country: IT (occurrence: IT)
  Receive Date: 20171109
  Receipt Date: 20230121
  Transmission Date: 20230418
  Serious: Yes (Hospitalization)
  Sender: FDA-Public Use
  Company Number: IT-AUROBINDO-AUR-APL-2013-01562

PATIENT
  Age: 33 Year
  Sex: Male

DRUGS (7)
  1. ALPRAZOLAM [Suspect]
     Active Substance: ALPRAZOLAM
     Indication: Overdose
     Dosage: 50 DROPS PER DAY
     Dates: start: 20110224, end: 20110224
  2. BROMAZEPAM [Suspect]
     Active Substance: BROMAZEPAM
     Indication: Product used for unknown indication
     Dosage: 50 DROPS PER DAY
     Dates: start: 20110223, end: 20110223
  3. BROMAZEPAM [Suspect]
     Active Substance: BROMAZEPAM
     Indication: Overdose
  4. KLACID                             /00984601/ [Concomitant]
     Indication: Product used for unknown indication
     Dosage: 500 MG, UNK
     Route: 065
     Dates: start: 20110221, end: 20110224
  5. KLACID                             /00984601/ [Concomitant]
     Indication: Tonsillitis
  6. ROCEPHIN [Concomitant]
     Active Substance: CEFTRIAXONE SODIUM
     Indication: Product used for unknown indication
     Dosage: 1 G, UNK
     Route: 065
     Dates: start: 20110221, end: 20110224
  7. ROCEPHIN [Concomitant]
     Active Substance: CEFTRIAXONE SODIUM
     Indication: Tonsillitis

REACTIONS (4)
  - Bradykinesia [Recovered/Resolved]
  - Somnolence [Recovered/Resolved]
  - Depressed level of consciousness [Recovered/Resolved]
  - Overdose [Recovered/Resolved]

NARRATIVE: CASE EVENT DATE: 20110224
